FAERS Safety Report 4702162-5 (Version None)
Quarter: 2005Q2

REPORT INFORMATION
  Report Type: 
  Country: None (occurrence: None)
  Receive Date: 20050629
  Receipt Date: 20050621
  Transmission Date: 20051028
  Serious: Yes (Hospitalization, Other)
  Sender: FDA-Public Use
  Company Number: 200515248US

PATIENT
  Sex: Female

DRUGS (9)
  1. LANTUS [Suspect]
     Dosage: DOSE UNIT: UNITS
     Route: 058
     Dates: start: 20040101
  2. GLYBURIDE [Concomitant]
     Dosage: DOSE: %
  3. ACTOS [Concomitant]
  4. BENICAR                                 /USA/ [Concomitant]
  5. DILTIAZEM [Concomitant]
  6. SYNTHROID [Concomitant]
  7. LASIX [Concomitant]
  8. LORAZEPAM [Concomitant]
  9. GLUCOPHAGE [Concomitant]
     Dosage: DOSE: UNK
     Dates: end: 20050501

REACTIONS (2)
  - HYPERGLYCAEMIA [None]
  - NEPHROLITHIASIS [None]
